FAERS Safety Report 12798457 (Version 1)
Quarter: 2016Q3

REPORT INFORMATION
  Report Type: Report from Study
  Country: US (occurrence: US)
  Receive Date: 20160930
  Receipt Date: 20160930
  Transmission Date: 20161109
  Serious: Yes (Hospitalization)
  Sender: FDA-Public Use
  Company Number: US-ABBVIE-16K-163-1737233-00

PATIENT
  Age: 44 Year
  Sex: Female

DRUGS (3)
  1. PREDNISONE. [Concomitant]
     Active Substance: PREDNISONE
     Indication: PRODUCT USED FOR UNKNOWN INDICATION
  2. AZULFIDINE [Concomitant]
     Active Substance: SULFASALAZINE
     Indication: PRODUCT USED FOR UNKNOWN INDICATION
  3. HUMIRA [Suspect]
     Active Substance: ADALIMUMAB
     Indication: RHEUMATOID ARTHRITIS
     Route: 058
     Dates: start: 201511, end: 201608

REACTIONS (17)
  - Syncope [Recovering/Resolving]
  - Pseudomembranous colitis [Recovering/Resolving]
  - Tachycardia [Not Recovered/Not Resolved]
  - Red blood cell count decreased [Recovering/Resolving]
  - Electrolyte imbalance [Recovering/Resolving]
  - Loss of consciousness [Recovered/Resolved]
  - Aphonia [Recovering/Resolving]
  - Fatigue [Recovering/Resolving]
  - Blood albumin decreased [Recovering/Resolving]
  - Gastrointestinal candidiasis [Recovering/Resolving]
  - Blood potassium decreased [Recovering/Resolving]
  - Dehydration [Recovering/Resolving]
  - Abdominal pain upper [Recovered/Resolved]
  - Vomiting [Recovering/Resolving]
  - Blood magnesium decreased [Recovering/Resolving]
  - White blood cell count decreased [Recovering/Resolving]
  - Protein total decreased [Recovering/Resolving]

NARRATIVE: CASE EVENT DATE: 2016
